FAERS Safety Report 9133972 (Version 1)
Quarter: 2013Q1

REPORT INFORMATION
  Report Type: Spontaneous
  Country: US (occurrence: US)
  Receive Date: 20130304
  Receipt Date: 20130304
  Transmission Date: 20140127
  Serious: No
  Sender: FDA-Public Use
  Company Number: US-009507513-1302USA010147

PATIENT
  Sex: Male

DRUGS (1)
  1. SINEMET CR [Suspect]
     Indication: PARKINSON^S DISEASE
     Dosage: FIRST 2 PILLS AT 7:00 AM; THE 2ND DOSAGE OF 1- 1/2PILLS AT 3:00PM
     Route: 048
     Dates: start: 2008

REACTIONS (2)
  - Adverse event [Unknown]
  - Headache [Unknown]
